FAERS Safety Report 10420601 (Version 1)
Quarter: 2014Q3

REPORT INFORMATION
  Report Type: Spontaneous
  Country: US (occurrence: None)
  Receive Date: 20140714
  Receipt Date: 20140714
  Transmission Date: 20150326
  Serious: No
  Sender: FDA-Public Use
  Company Number: 2014US003145

PATIENT
  Age: 56 Year
  Sex: Male
  Weight: 120.6 kg

DRUGS (8)
  1. ICLUSIG [Suspect]
     Active Substance: PONATINIB
     Indication: CHRONIC MYELOID LEUKAEMIA
     Route: 048
     Dates: start: 20140313
  2. COREG [Concomitant]
     Active Substance: CARVEDILOL
  3. LISINOPRIL (LISINOPRIL DIHYDRATE) [Concomitant]
  4. LOVASTATIN (LOVASTATIN) [Concomitant]
     Active Substance: LOVASTATIN
  5. LEVOTHYROXINE (LEVOTHYROXINE SODIUM) [Concomitant]
  6. DETROL (TOLTERODINE I-TARTRATE [Concomitant]
  7. FAMOTIDINE (FAMOTIDINE) [Concomitant]
     Active Substance: FAMOTIDINE
  8. VALTREX [Concomitant]
     Active Substance: VALACYCLOVIR HYDROCHLORIDE

REACTIONS (4)
  - Constipation [None]
  - Rash [None]
  - Furuncle [None]
  - Diarrhoea [None]

NARRATIVE: CASE EVENT DATE: 20140320
